FAERS Safety Report 9337220 (Version 2)
Quarter: 2013Q3

REPORT INFORMATION
  Report Type: Spontaneous
  Country: PR (occurrence: US)
  Receive Date: 20130607
  Receipt Date: 20130903
  Transmission Date: 20140515
  Serious: Yes (Death, Hospitalization)
  Sender: FDA-Public Use
  Company Number: PR-INCYTE CORPORATION-2013IN001110

PATIENT
  Sex: 0

DRUGS (3)
  1. JAKAFI [Suspect]
     Indication: MYELOFIBROSIS
     Dosage: 20 MG, BID
     Route: 048
     Dates: start: 20130322, end: 2013
  2. JAKAFI [Suspect]
     Dosage: 5 MG, BID
     Route: 048
     Dates: start: 2013
  3. HYDROXYUREA [Concomitant]

REACTIONS (3)
  - Death [Fatal]
  - Weight decreased [Unknown]
  - Anaemia [Unknown]
